FAERS Safety Report 4479964-6 (Version None)
Quarter: 2004Q4

REPORT INFORMATION
  Report Type: 
  Country: None (occurrence: None)
  Receive Date: 20041020
  Receipt Date: 20041012
  Transmission Date: 20050328
  Serious: Yes (Hospitalization)
  Sender: FDA-Public Use
  Company Number: PHRM2004FR03074

PATIENT
  Age: 21 Year
  Sex: Male

DRUGS (4)
  1. MYFORTIC [Suspect]
     Dosage: 360 MG, BID
     Route: 048
     Dates: end: 20040918
  2. ENTOCORT [Suspect]
     Route: 048
     Dates: end: 20040916
  3. PYOSTACINE [Suspect]
     Dosage: 2 G DAILY
     Route: 048
     Dates: end: 20040913
  4. VALACYCLOVIR HCL [Suspect]
     Dosage: 3 G DAILY
     Route: 048
     Dates: end: 20040915

REACTIONS (2)
  - HYPOXIA [None]
  - LUNG DISORDER [None]
